FAERS Safety Report 11841967 (Version 1)
Quarter: 2015Q4

REPORT INFORMATION
  Report Type: Spontaneous
  Country: US (occurrence: US)
  Receive Date: 20151216
  Receipt Date: 20151216
  Transmission Date: 20160305
  Serious: No
  Sender: FDA-Public Use
  Company Number: US-RB-072725-15

PATIENT
  Age: 67 Year
  Sex: Female

DRUGS (1)
  1. DELSYM [Suspect]
     Active Substance: DEXTROMETHORPHAN
     Indication: COUGH
     Dosage: 10ML. PATIENT TOOK PRODUCT LAST ON 08-JAN-2015 AT 08:00 PM,FREQUENCY UNK
     Route: 065
     Dates: start: 20150108

REACTIONS (2)
  - Drug ineffective [Not Recovered/Not Resolved]
  - Heart rate increased [Recovered/Resolved]
